FAERS Safety Report 26011110 (Version 1)
Quarter: 2025Q4

REPORT INFORMATION
  Report Type: Spontaneous
  Country: US (occurrence: US)
  Receive Date: 20251107
  Receipt Date: 20251107
  Transmission Date: 20260118
  Serious: Yes (Life-Threatening, Hospitalization)
  Sender: MYLAN
  Company Number: US-MYLANLABS-2025M1093365

PATIENT
  Age: 49 Year
  Sex: Male

DRUGS (36)
  1. PREDNISONE [Suspect]
     Active Substance: PREDNISONE
     Indication: Myasthenia gravis
     Dosage: 200 MILLIGRAM, QW
  2. PREDNISONE [Suspect]
     Active Substance: PREDNISONE
     Dosage: 200 MILLIGRAM, QW
     Route: 065
  3. PREDNISONE [Suspect]
     Active Substance: PREDNISONE
     Dosage: 200 MILLIGRAM, QW
     Route: 065
  4. PREDNISONE [Suspect]
     Active Substance: PREDNISONE
     Dosage: 200 MILLIGRAM, QW
  5. CETIRIZINE [Suspect]
     Active Substance: CETIRIZINE HYDROCHLORIDE
     Indication: Anaphylactic reaction
     Dosage: 10 MILLIGRAM
  6. CETIRIZINE [Suspect]
     Active Substance: CETIRIZINE HYDROCHLORIDE
     Dosage: 10 MILLIGRAM
     Route: 065
  7. CETIRIZINE [Suspect]
     Active Substance: CETIRIZINE HYDROCHLORIDE
     Dosage: 10 MILLIGRAM
     Route: 065
  8. CETIRIZINE [Suspect]
     Active Substance: CETIRIZINE HYDROCHLORIDE
     Dosage: 10 MILLIGRAM
  9. FAMOTIDINE [Suspect]
     Active Substance: FAMOTIDINE
     Indication: Anaphylactic reaction
     Dosage: 20 MILLIGRAM
  10. FAMOTIDINE [Suspect]
     Active Substance: FAMOTIDINE
     Dosage: 20 MILLIGRAM
     Route: 042
  11. FAMOTIDINE [Suspect]
     Active Substance: FAMOTIDINE
     Dosage: 20 MILLIGRAM
     Route: 042
  12. FAMOTIDINE [Suspect]
     Active Substance: FAMOTIDINE
     Dosage: 20 MILLIGRAM
  13. HYDROCORTISONE [Suspect]
     Active Substance: HYDROCORTISONE
     Indication: Anaphylactic reaction
     Dosage: 100 MILLIGRAM, STRESS DOSE
  14. HYDROCORTISONE [Suspect]
     Active Substance: HYDROCORTISONE
     Dosage: 100 MILLIGRAM, STRESS DOSE
     Route: 042
  15. HYDROCORTISONE [Suspect]
     Active Substance: HYDROCORTISONE
     Dosage: 100 MILLIGRAM, STRESS DOSE
     Route: 042
  16. HYDROCORTISONE [Suspect]
     Active Substance: HYDROCORTISONE
     Dosage: 100 MILLIGRAM, STRESS DOSE
  17. SODIUM CHLORIDE [Suspect]
     Active Substance: SODIUM CHLORIDE
     Indication: Anaphylactic reaction
     Dosage: 2 LITER
  18. SODIUM CHLORIDE [Suspect]
     Active Substance: SODIUM CHLORIDE
     Dosage: 2 LITER
     Route: 042
  19. SODIUM CHLORIDE [Suspect]
     Active Substance: SODIUM CHLORIDE
     Dosage: 2 LITER
     Route: 042
  20. SODIUM CHLORIDE [Suspect]
     Active Substance: SODIUM CHLORIDE
     Dosage: 2 LITER
  21. DIPHENHYDRAMINE [Suspect]
     Active Substance: DIPHENHYDRAMINE
     Indication: Anaphylactic reaction
     Dosage: UNK, RECEIVED MULTIPLE DOSES
  22. DIPHENHYDRAMINE [Suspect]
     Active Substance: DIPHENHYDRAMINE
     Dosage: UNK, RECEIVED MULTIPLE DOSES
  23. DIPHENHYDRAMINE [Suspect]
     Active Substance: DIPHENHYDRAMINE
     Dosage: UNK, RECEIVED MULTIPLE DOSES
     Route: 065
  24. DIPHENHYDRAMINE [Suspect]
     Active Substance: DIPHENHYDRAMINE
     Dosage: UNK, RECEIVED MULTIPLE DOSES
     Route: 065
  25. DIPHENHYDRAMINE [Suspect]
     Active Substance: DIPHENHYDRAMINE
     Dosage: 25 MILLIGRAM
  26. DIPHENHYDRAMINE [Suspect]
     Active Substance: DIPHENHYDRAMINE
     Dosage: 25 MILLIGRAM
  27. DIPHENHYDRAMINE [Suspect]
     Active Substance: DIPHENHYDRAMINE
     Dosage: 25 MILLIGRAM
     Route: 065
  28. DIPHENHYDRAMINE [Suspect]
     Active Substance: DIPHENHYDRAMINE
     Dosage: 25 MILLIGRAM
     Route: 065
  29. EPINEPHRINE [Concomitant]
     Active Substance: EPINEPHRINE
     Indication: Anaphylactic reaction
     Dosage: 0.3 MILLIGRAM, BID
  30. EPINEPHRINE [Concomitant]
     Active Substance: EPINEPHRINE
     Dosage: 0.3 MILLIGRAM, BID
  31. EPINEPHRINE [Concomitant]
     Active Substance: EPINEPHRINE
     Dosage: 0.3 MILLIGRAM, BID
     Route: 030
  32. EPINEPHRINE [Concomitant]
     Active Substance: EPINEPHRINE
     Dosage: 0.3 MILLIGRAM, BID
     Route: 030
  33. EPINEPHRINE [Concomitant]
     Active Substance: EPINEPHRINE
     Dosage: UNK, THERAPY CONTINUED
  34. EPINEPHRINE [Concomitant]
     Active Substance: EPINEPHRINE
     Dosage: UNK, THERAPY CONTINUED
  35. EPINEPHRINE [Concomitant]
     Active Substance: EPINEPHRINE
     Dosage: UNK, THERAPY CONTINUED
     Route: 030
  36. EPINEPHRINE [Concomitant]
     Active Substance: EPINEPHRINE
     Dosage: UNK, THERAPY CONTINUED
     Route: 030

REACTIONS (3)
  - Symptom masked [Unknown]
  - Drug ineffective [Unknown]
  - Product used for unknown indication [Unknown]
